FAERS Safety Report 16690337 (Version 7)
Quarter: 2019Q3

REPORT INFORMATION
  Report Type: Report from Study
  Country: None (occurrence: FR)
  Receive Date: 20190810
  Receipt Date: 20190823
  Transmission Date: 20191004
  Serious: Yes (Life-Threatening, Hospitalization)
  Sender: FDA-Public Use
  Company Number: ES-ABBVIE-19K-144-2883185-00

PATIENT
  Age: 63 Year
  Sex: Female
  Weight: 60 kg

DRUGS (2)
  1. DUODOPA [Suspect]
     Active Substance: CARBIDOPA\LEVODOPA
     Indication: PARKINSON^S DISEASE
     Dosage: CONTINUOUS DOSE 1.8 ML
     Route: 050
     Dates: start: 20190516, end: 20190820
  2. DUODOPA [Suspect]
     Active Substance: CARBIDOPA\LEVODOPA
     Dosage: CONTINUOUS DOSE INCREASED FROM 1.8ML TO 2 ML
     Route: 050
     Dates: start: 20190820

REACTIONS (9)
  - Product administration error [Unknown]
  - Abdominal discomfort [Unknown]
  - Appendicitis [Recovering/Resolving]
  - Peritonitis [Recovering/Resolving]
  - Constipation [Unknown]
  - Gangrene [Recovering/Resolving]
  - Drug ineffective [Unknown]
  - On and off phenomenon [Unknown]
  - Product storage error [Unknown]

NARRATIVE: CASE EVENT DATE: 2019
